FAERS Safety Report 8046085-5 (Version None)
Quarter: 2012Q1

REPORT INFORMATION
  Report Type: 
  Country: None (occurrence: None)
  Receive Date: 20120113
  Receipt Date: 20120109
  Transmission Date: 20120608
  Serious: Yes (Other)
  Sender: FDA-Public Use
  Company Number: US-PFIZER INC-2012006703

PATIENT
  Sex: Female
  Weight: 64.399 kg

DRUGS (3)
  1. EFFEXOR [Suspect]
     Indication: DEPRESSION
     Dosage: UNK
     Route: 048
     Dates: end: 20120101
  2. WELLBUTRIN [Concomitant]
     Dosage: UNK
  3. EFFEXOR [Suspect]
     Indication: BIPOLAR DISORDER
     Dosage: 250 MG, 1X/DAY
     Route: 048
     Dates: end: 20120101

REACTIONS (8)
  - PARANOIA [None]
  - WITHDRAWAL SYNDROME [None]
  - GAIT DISTURBANCE [None]
  - TREMOR [None]
  - MIGRAINE [None]
  - HEAD TITUBATION [None]
  - DISTURBANCE IN ATTENTION [None]
  - HYPOAESTHESIA [None]
